FAERS Safety Report 4264238-9 (Version None)
Quarter: 2004Q1

REPORT INFORMATION
  Report Type: 
  Country: None (occurrence: None)
  Receive Date: 20040102
  Receipt Date: 20031216
  Transmission Date: 20041129
  Serious: Yes (Hospitalization)
  Sender: FDA-Public Use
  Company Number: 701425

PATIENT
  Age: 47 Year
  Sex: Female

DRUGS (1)
  1. AMEVIVE [Suspect]
     Indication: PSORIASIS
     Dosage: 15 MG QW IM
     Route: 030
     Dates: start: 20031202, end: 20031215

REACTIONS (4)
  - INTERSTITIAL LUNG DISEASE [None]
  - PNEUMONIA STREPTOCOCCAL [None]
  - RENAL FAILURE [None]
  - SWELLING [None]
